FAERS Safety Report 15148796 (Version 3)
Quarter: 2018Q3

REPORT INFORMATION
  Report Type: Spontaneous
  Country: AU (occurrence: AU)
  Receive Date: 20180716
  Receipt Date: 20180827
  Transmission Date: 20181010
  Serious: Yes (Other)
  Sender: FDA-Public Use
  Company Number: AU-AMGEN-AUSSP2018093777

PATIENT
  Age: 69 Year
  Sex: Female

DRUGS (10)
  1. VITAMIN D [Concomitant]
     Active Substance: CHOLECALCIFEROL
     Dosage: UNK, 1.000 IU ? 2,000 IU
  2. COQ10 [Concomitant]
     Active Substance: UBIDECARENONE
     Dosage: UNK, 100 ? 150MG
  3. OLIVE LEAF EXTRACT [Concomitant]
     Dosage: 1 CAPSULE, UNK
  4. LUTEIN [Concomitant]
     Active Substance: LUTEIN
     Dosage: 10?12MG
  5. BILBERRY [Concomitant]
     Active Substance: BILBERRY
     Dosage: 12000 UNK, QD
  6. PANADOL [Concomitant]
     Active Substance: ACETAMINOPHEN
     Dosage: UNK
  7. MAGNESIUM CITRATE. [Concomitant]
     Active Substance: MAGNESIUM CITRATE
     Dosage: 300 MG, UNK
  8. PROLIA [Suspect]
     Active Substance: DENOSUMAB
     Indication: OSTEOPOROSIS
     Dosage: UNK, Q6MO
     Route: 065
     Dates: start: 20160129
  9. PROLIA [Suspect]
     Active Substance: DENOSUMAB
     Indication: OSTEOPENIA
  10. FISH OIL [Concomitant]
     Active Substance: FISH OIL
     Dosage: 18000 MG, UNK

REACTIONS (57)
  - Dyspnoea [Unknown]
  - Pain [Unknown]
  - Facial pain [Unknown]
  - Tinnitus [Unknown]
  - Arthralgia [Not Recovered/Not Resolved]
  - Dizziness [Not Recovered/Not Resolved]
  - Urinary tract infection [Unknown]
  - Musculoskeletal chest pain [Unknown]
  - Blood cholesterol increased [Recovered/Resolved]
  - Disorientation [Unknown]
  - Alopecia [Recovered/Resolved]
  - Palpitations [Unknown]
  - Muscular weakness [Unknown]
  - Hypoacusis [Unknown]
  - Joint lock [Recovered/Resolved]
  - Fatigue [Unknown]
  - Rash [Not Recovered/Not Resolved]
  - Gait disturbance [Unknown]
  - Rash maculo-papular [Recovering/Resolving]
  - Skin exfoliation [Recovering/Resolving]
  - Intraocular pressure test abnormal [Unknown]
  - Sleep disorder due to general medical condition, insomnia type [Unknown]
  - Chills [Unknown]
  - Ear pain [Unknown]
  - Pain of skin [Unknown]
  - Dry skin [Unknown]
  - Abdominal pain upper [Unknown]
  - Spinal compression fracture [Unknown]
  - Muscle spasms [Unknown]
  - Skin irritation [Recovering/Resolving]
  - Blood pressure fluctuation [Recovered/Resolved]
  - Blood glucose increased [Recovered/Resolved]
  - Bone disorder [Unknown]
  - Abdominal distension [Unknown]
  - Skin warm [Unknown]
  - Erythema [Unknown]
  - Quality of life decreased [Unknown]
  - Nail disorder [Unknown]
  - Muscle twitching [Unknown]
  - Chest discomfort [Unknown]
  - Cough [Not Recovered/Not Resolved]
  - Night sweats [Unknown]
  - Bone pain [Not Recovered/Not Resolved]
  - Blood calcium decreased [Unknown]
  - Hyperhidrosis [Recovered/Resolved]
  - Pruritus generalised [Recovered/Resolved]
  - Hypoaesthesia [Unknown]
  - Dysphagia [Unknown]
  - Nausea [Not Recovered/Not Resolved]
  - Pyrexia [Unknown]
  - Skin swelling [Unknown]
  - Myalgia [Not Recovered/Not Resolved]
  - Eczema [Recovered/Resolved]
  - Skin haemorrhage [Unknown]
  - Lethargy [Not Recovered/Not Resolved]
  - Emotional disorder [Unknown]
  - Pain in extremity [Unknown]

NARRATIVE: CASE EVENT DATE: 20160130
